FAERS Safety Report 10091414 (Version 2)
Quarter: 2014Q2

REPORT INFORMATION
  Report Type: Spontaneous
  Country: US (occurrence: US)
  Receive Date: 20140421
  Receipt Date: 20140421
  Transmission Date: 20141212
  Serious: No
  Sender: FDA-Public Use
  Company Number: US-GILEAD-2012-0065336

PATIENT
  Sex: Female
  Weight: 60.77 kg

DRUGS (2)
  1. LETAIRIS [Suspect]
     Indication: PULMONARY ARTERIAL HYPERTENSION
     Dosage: 5 MG
     Route: 048
     Dates: start: 20121112
  2. LETAIRIS [Suspect]

REACTIONS (4)
  - Abdominal distension [Recovered/Resolved]
  - Feeling abnormal [Unknown]
  - Weight increased [Recovered/Resolved]
  - Fluid retention [Recovered/Resolved]
